FAERS Safety Report 6442103-6 (Version None)
Quarter: 2009Q4

REPORT INFORMATION
  Report Type: 
  Country: None (occurrence: None)
  Receive Date: 20091116
  Receipt Date: 20091103
  Transmission Date: 20100525
  Serious: Yes (Hospitalization)
  Sender: FDA-Public Use
  Company Number: PHEH2009US15059

PATIENT
  Sex: Female

DRUGS (1)
  1. RECLAST [Suspect]
     Indication: OSTEOPOROSIS POSTMENOPAUSAL
     Dosage: 5 MG , ONCE A YEAR
     Route: 042

REACTIONS (3)
  - BLOOD MAGNESIUM DECREASED [None]
  - HYPERSENSITIVITY [None]
  - HYPOCALCAEMIA [None]
